FAERS Safety Report 5624594-3 (Version None)
Quarter: 2008Q1

REPORT INFORMATION
  Report Type: 
  Country: None (occurrence: None)
  Receive Date: 20080213
  Receipt Date: 20080208
  Transmission Date: 20080703
  Serious: Yes (Hospitalization)
  Sender: FDA-Public Use
  Company Number: DE-ASTRAZENECA-2008PK00298

PATIENT
  Age: 16358 Day
  Sex: Male

DRUGS (26)
  1. SEROQUEL [Interacting]
     Route: 048
     Dates: start: 20040501, end: 20051201
  2. SEROQUEL [Interacting]
     Route: 048
     Dates: start: 20051201, end: 20070724
  3. SEROQUEL [Interacting]
     Route: 048
     Dates: start: 20070725, end: 20070801
  4. SEROQUEL [Interacting]
     Route: 048
     Dates: start: 20070802, end: 20070910
  5. SEROQUEL [Interacting]
     Route: 048
     Dates: start: 20070911
  6. FLUANXOL [Suspect]
     Route: 048
     Dates: start: 20030301, end: 20030301
  7. FLUANXOL [Suspect]
     Route: 048
     Dates: start: 20030301, end: 20060201
  8. FLUANXOL [Suspect]
     Dosage: 7 - 2 MG DAILY
     Route: 048
     Dates: start: 20060201, end: 20061101
  9. FLUANXOL [Suspect]
     Route: 048
     Dates: start: 20070629, end: 20070726
  10. FLUANXOL [Suspect]
     Route: 048
     Dates: start: 20070727, end: 20070801
  11. FLUANXOL [Suspect]
     Route: 048
     Dates: start: 20070802, end: 20070803
  12. FLUANXOL [Suspect]
     Route: 048
     Dates: start: 20070804, end: 20070805
  13. ABILIFY [Interacting]
     Route: 048
     Dates: start: 20051201, end: 20070718
  14. ABILIFY [Interacting]
     Route: 048
     Dates: start: 20070719, end: 20070727
  15. ABILIFY [Interacting]
     Route: 048
     Dates: start: 20070728, end: 20070803
  16. ABILIFY [Interacting]
     Route: 048
     Dates: start: 20070804, end: 20070827
  17. ABILIFY [Interacting]
     Route: 048
     Dates: start: 20070904, end: 20070911
  18. ABILIFY [Interacting]
     Route: 048
     Dates: start: 20070912, end: 20070926
  19. ABILIFY [Interacting]
     Route: 048
     Dates: start: 20070927, end: 20071001
  20. ABILIFY [Interacting]
     Route: 048
     Dates: start: 20071002, end: 20071017
  21. CIPRAMIL [Concomitant]
     Route: 048
     Dates: start: 20070629, end: 20070911
  22. CIPRAMIL [Concomitant]
     Route: 048
     Dates: start: 20070912, end: 20070914
  23. TAVOR [Concomitant]
     Route: 048
     Dates: start: 20070719, end: 20070812
  24. TAVOR [Concomitant]
     Route: 048
     Dates: start: 20070813, end: 20070816
  25. DOCITON [Concomitant]
     Route: 048
     Dates: end: 20070717
  26. DOCITON [Concomitant]
     Route: 048
     Dates: start: 20070718, end: 20070819

REACTIONS (2)
  - BLOOD CREATINE PHOSPHOKINASE INCREASED [None]
  - DRUG INTERACTION [None]
